FAERS Safety Report 16764545 (Version 1)
Quarter: 2019Q3

REPORT INFORMATION
  Report Type: Spontaneous
  Country: FR (occurrence: FR)
  Receive Date: 20190902
  Receipt Date: 20190902
  Transmission Date: 20191005
  Serious: Yes (Hospitalization, Other)
  Sender: FDA-Public Use
  Company Number: FR-PFIZER INC-2019373311

PATIENT
  Age: 15 Year
  Sex: Male

DRUGS (2)
  1. XANAX [Suspect]
     Active Substance: ALPRAZOLAM
     Dosage: UNK
     Route: 048
     Dates: start: 20190714, end: 20190714
  2. EUPHON (CODEINE\HERBALS) [Suspect]
     Active Substance: CODEINE\HERBALS
     Indication: DRUG ABUSE
     Dosage: UNK
     Route: 048
     Dates: start: 20190714, end: 20190714

REACTIONS (7)
  - Agitation [Recovered/Resolved]
  - Delirium [Recovered/Resolved]
  - Hallucination, visual [Recovered/Resolved]
  - Off label use [Unknown]
  - Aggression [Recovered/Resolved]
  - Product use issue [Unknown]
  - Drug abuse [Unknown]

NARRATIVE: CASE EVENT DATE: 20190714
